FAERS Safety Report 13795628 (Version 4)
Quarter: 2017Q3

REPORT INFORMATION
  Report Type: Spontaneous
  Country: JP (occurrence: JP)
  Receive Date: 20170726
  Receipt Date: 20170801
  Transmission Date: 20171127
  Serious: Yes (Hospitalization)
  Sender: FDA-Public Use
  Company Number: PHJP2017JP023340

PATIENT
  Age: 76 Year
  Sex: Male

DRUGS (1)
  1. CICLOSPORIN [Suspect]
     Active Substance: CYCLOSPORINE
     Indication: APLASIA PURE RED CELL
     Dosage: UNK
     Route: 048
     Dates: start: 201312

REACTIONS (6)
  - Product use in unapproved indication [Unknown]
  - Pyrexia [Unknown]
  - Pneumonia streptococcal [Recovering/Resolving]
  - Septic shock [Recovering/Resolving]
  - Disseminated intravascular coagulation [Recovering/Resolving]
  - Chills [Unknown]

NARRATIVE: CASE EVENT DATE: 201402
